FAERS Safety Report 4395318-5 (Version None)
Quarter: 2004Q2

REPORT INFORMATION
  Report Type: 
  Country: None (occurrence: None)
  Receive Date: 20040621
  Receipt Date: 20031017
  Transmission Date: 20050107
  Serious: Yes (Other)
  Sender: FDA-Public Use
  Company Number: USA-2003-0010390

PATIENT
  Sex: Male

DRUGS (1)
  1. OXYCONTIN [Suspect]
     Indication: PAIN

REACTIONS (12)
  - ANXIETY [None]
  - BRADYPHRENIA [None]
  - CHILLS [None]
  - CONDITION AGGRAVATED [None]
  - DEPRESSION [None]
  - DRUG DEPENDENCE [None]
  - DRUG WITHDRAWAL SYNDROME [None]
  - HYPERHIDROSIS [None]
  - INSOMNIA [None]
  - LETHARGY [None]
  - MYALGIA [None]
  - VOMITING [None]
